FAERS Safety Report 5170219-3 (Version None)
Quarter: 2006Q4

REPORT INFORMATION
  Report Type: 
  Country: None (occurrence: None)
  Receive Date: 20061204
  Receipt Date: 20061121
  Transmission Date: 20070319
  Serious: Yes (Other)
  Sender: FDA-Public Use
  Company Number: SP-2006-003351

PATIENT
  Age: 47 Year
  Sex: Male
  Weight: 85 kg

DRUGS (6)
  1. OLMETEC [Suspect]
     Indication: HYPERTENSION
     Dosage: 20 MG QD PO
     Route: 048
  2. TRANDATE [Concomitant]
  3. PHYSIOTENS [Concomitant]
  4. LOXEN [Concomitant]
  5. GLUCOPHAGE [Concomitant]
  6. GLIMEPIRIDE [Concomitant]

REACTIONS (1)
  - PALATAL OEDEMA [None]
